FAERS Safety Report 7866809-7 (Version None)
Quarter: 2011Q4

REPORT INFORMATION
  Report Type: 
  Country: None (occurrence: None)
  Receive Date: 20111028
  Receipt Date: 20110825
  Transmission Date: 20120403
  Serious: No
  Sender: FDA-Public Use
  Company Number: US-GLAXOSMITHKLINE-A0942300A

PATIENT
  Age: 79 Year
  Sex: Female

DRUGS (7)
  1. DILTIAZEM HCL [Concomitant]
  2. HYDROCHLOROTHIAZIDE [Concomitant]
  3. ADVAIR DISKUS 100/50 [Suspect]
     Indication: ASTHMA
     Dosage: 1PUFF TWICE PER DAY
     Route: 055
     Dates: start: 20110701, end: 20110825
  4. DIOVAN [Concomitant]
  5. LEVOXYL [Concomitant]
  6. COUMADIN [Concomitant]
  7. SINGULAIR [Concomitant]

REACTIONS (1)
  - DYSPHONIA [None]
